FAERS Safety Report 9337045 (Version 2)
Quarter: 2014Q2

REPORT INFORMATION
  Report Type: Spontaneous
  Country: US (occurrence: US)
  Receive Date: 20130607
  Receipt Date: 20140528
  Transmission Date: 20141212
  Serious: Yes (Congenital Anomaly, Other)
  Sender: FDA-Public Use
  Company Number: US-PFIZER INC-2013169931

PATIENT
  Age: 3 Year
  Sex: Male

DRUGS (6)
  1. ZOLOFT [Suspect]
     Dosage: UNK
     Route: 064
     Dates: start: 2008
  2. SERTRALINE HCL [Suspect]
     Dosage: UNK
     Route: 064
     Dates: start: 2008
  3. METFORMIN [Concomitant]
     Dosage: UNK
     Route: 064
  4. INSULIN [Concomitant]
     Dosage: UNK
     Route: 064
  5. FOLIC ACID [Concomitant]
     Dosage: UNK
     Route: 064
  6. PRENATAL VITAMINS [Concomitant]
     Dosage: UNK
     Route: 064

REACTIONS (4)
  - Maternal exposure timing unspecified [Unknown]
  - Talipes [Unknown]
  - Deafness [Unknown]
  - Attention deficit/hyperactivity disorder [Unknown]
